FAERS Safety Report 8222432-6 (Version None)
Quarter: 2012Q1

REPORT INFORMATION
  Report Type: 
  Country: None (occurrence: None)
  Receive Date: 20120320
  Receipt Date: 20120308
  Transmission Date: 20120608
  Serious: Yes (Other)
  Sender: FDA-Public Use
  Company Number: KR-ELI_LILLY_AND_COMPANY-KR201203003099

PATIENT
  Age: 76 Year
  Sex: Male

DRUGS (2)
  1. HUMALOG MIX 75/25 [Suspect]
     Indication: TYPE 2 DIABETES MELLITUS
     Dosage: 20 U, UNKNOWN
     Route: 058
     Dates: start: 20090101
  2. HUMALOG MIX 75/25 [Suspect]
     Dosage: 17 U, UNKNOWN
     Dates: start: 20090101

REACTIONS (1)
  - HYPOGLYCAEMIC UNCONSCIOUSNESS [None]
